FAERS Safety Report 5458757-7 (Version None)
Quarter: 2007Q3

REPORT INFORMATION
  Report Type: 
  Country: None (occurrence: None)
  Receive Date: 20070919
  Receipt Date: 20070427
  Transmission Date: 20080115
  Serious: No
  Sender: FDA-Public Use
  Company Number: US-ASTRAZENECA-2007UW08153

PATIENT
  Age: 39 Year
  Sex: Female

DRUGS (3)
  1. SEROQUEL [Suspect]
     Indication: BIPOLAR DISORDER
     Route: 048
  2. MIRTAZAPINE [Suspect]
     Route: 048
  3. NEURONTIN [Suspect]
     Route: 048

REACTIONS (5)
  - COORDINATION ABNORMAL [None]
  - FATIGUE [None]
  - HALLUCINATION, TACTILE [None]
  - HALLUCINATION, VISUAL [None]
  - SOMNOLENCE [None]
